FAERS Safety Report 11756877 (Version 1)
Quarter: 2015Q4

REPORT INFORMATION
  Report Type: Spontaneous
  Country: FR (occurrence: FR)
  Receive Date: 20151120
  Receipt Date: 20151120
  Transmission Date: 20160304
  Serious: Yes (Death, Hospitalization)
  Sender: FDA-Public Use
  Company Number: FR-CIPLA LTD.-2015FR08610

PATIENT

DRUGS (5)
  1. FLUOROURACIL. [Suspect]
     Active Substance: FLUOROURACIL
     Indication: COLORECTAL CANCER METASTATIC
     Dosage: 400 MG/M2, UNK
     Route: 042
  2. FLUOROURACIL. [Suspect]
     Active Substance: FLUOROURACIL
     Dosage: 600 MG/M2, OVER 22 HOURS ON DAYS 1 AND 2
  3. G-CSF [Suspect]
     Active Substance: GRANULOCYTE COLONY-STIMULATING FACTOR NOS
     Dosage: 36 X 10E6 IU FROM DAY 7 TO 12
     Route: 065
  4. LEUCOVORIN. [Suspect]
     Active Substance: LEUCOVORIN
     Indication: COLORECTAL CANCER METASTATIC
     Dosage: 200 MG/M2, OVER 2 HOURS IV INFUSION
     Route: 042
  5. IRINOTECAN [Suspect]
     Active Substance: IRINOTECAN
     Indication: COLORECTAL CANCER METASTATIC
     Dosage: 260 MG/M2, OVER 30 MIN INFUSION ON DAY 1
     Route: 042

REACTIONS (7)
  - Septic shock [Fatal]
  - Sepsis [Fatal]
  - Tumour perforation [Fatal]
  - Intestinal obstruction [Unknown]
  - Lung disorder [Unknown]
  - Neutropenia [Unknown]
  - Dehydration [Unknown]
